FAERS Safety Report 8160350-2 (Version None)
Quarter: 2012Q1

REPORT INFORMATION
  Report Type: 
  Country: None (occurrence: None)
  Receive Date: 20120223
  Receipt Date: 20120209
  Transmission Date: 20120608
  Serious: Yes (Other)
  Sender: FDA-Public Use
  Company Number: FR-AMGEN-FRASP2011058224

PATIENT
  Age: 61 Year
  Sex: Female
  Weight: 73 kg

DRUGS (3)
  1. ARANESP [Suspect]
     Indication: ANAEMIA
     Dosage: 30 MUG, QMO
     Route: 058
     Dates: start: 20110921
  2. LASIX [Concomitant]
     Dosage: UNK
  3. VALSARTAN [Concomitant]
     Dosage: UNK

REACTIONS (3)
  - VISUAL IMPAIRMENT [None]
  - HYPERTENSION [None]
  - OCULAR HYPERTENSION [None]
